FAERS Safety Report 9637903 (Version 1)
Quarter: 2013Q4

REPORT INFORMATION
  Report Type: Spontaneous
  Country: US (occurrence: US)
  Receive Date: 20131022
  Receipt Date: 20131022
  Transmission Date: 20140711
  Serious: Yes (Hospitalization)
  Sender: FDA-Public Use
  Company Number: US-SA-2013SA105976

PATIENT
  Sex: Female

DRUGS (1)
  1. RENVELA [Suspect]
     Indication: PRODUCT USED FOR UNKNOWN INDICATION
     Dosage: HAS BEEEN ON SEVELAMER CARBONATE FOR ABOUT THE LAST YEAR TO YEAR AND A HALF
     Route: 065

REACTIONS (1)
  - Pneumonia [Unknown]
